FAERS Safety Report 7587558-9 (Version None)
Quarter: 2011Q3

REPORT INFORMATION
  Report Type: 
  Country: None (occurrence: None)
  Receive Date: 20110704
  Receipt Date: 20110620
  Transmission Date: 20111222
  Serious: Yes (Other)
  Sender: FDA-Public Use
  Company Number: PHHY2011CA55832

PATIENT
  Sex: Female

DRUGS (2)
  1. RAMIPRIL [Concomitant]
     Dosage: 10 MG, QD
     Dates: start: 20080401, end: 20110606
  2. ZOLEDRONIC ACID [Suspect]
     Dosage: 5 MG,
     Route: 042
     Dates: start: 20100617

REACTIONS (4)
  - HYPERKALAEMIA [None]
  - BLOOD SODIUM DECREASED [None]
  - BLOOD CHLORIDE DECREASED [None]
  - BLOOD CREATININE DECREASED [None]
